FAERS Safety Report 9761679 (Version 1)
Quarter: 2013Q4

REPORT INFORMATION
  Report Type: Report from Study
  Country: US (occurrence: US)
  Receive Date: 20131216
  Receipt Date: 20131216
  Transmission Date: 20140711
  Serious: Yes (Hospitalization)
  Sender: FDA-Public Use
  Company Number: US-ALEXION PHARMACEUTICALS INC.-A201304053

PATIENT
  Age: 17 Year
  Sex: Female

DRUGS (3)
  1. SOLIRIS [Suspect]
     Indication: HAEMOLYTIC URAEMIC SYNDROME
     Dosage: UNK
     Route: 042
  2. LASIX [Concomitant]
  3. OXYCONTIN [Concomitant]
     Indication: PAIN

REACTIONS (1)
  - Surgery [Unknown]
